FAERS Safety Report 12422963 (Version 1)
Quarter: 2016Q2

REPORT INFORMATION
  Report Type: Spontaneous
  Country: US (occurrence: US)
  Receive Date: 20160601
  Receipt Date: 20160601
  Transmission Date: 20160815
  Serious: No
  Sender: FDA-Public Use
  Company Number: US-APOTEX-2016AP008160

PATIENT
  Age: 57 Year
  Sex: Female

DRUGS (2)
  1. ACYCLOVIR. [Suspect]
     Active Substance: ACYCLOVIR
     Dosage: 400 MG, QID
     Route: 065
  2. ACYCLOVIR. [Suspect]
     Active Substance: ACYCLOVIR
     Indication: PRODUCT USED FOR UNKNOWN INDICATION
     Dosage: 400 MG, BID
     Route: 065
     Dates: start: 2004

REACTIONS (3)
  - Herpes virus infection [Unknown]
  - Intentional overdose [Unknown]
  - Drug ineffective [Unknown]
